FAERS Safety Report 14764616 (Version 1)
Quarter: 2018Q2

REPORT INFORMATION
  Report Type: Spontaneous
  Country: US (occurrence: US)
  Receive Date: 20180416
  Receipt Date: 20180416
  Transmission Date: 20180711
  Serious: No
  Sender: FDA-Public Use
  Company Number: US-009507513-1804USA006536

PATIENT
  Age: 21 Year
  Sex: Female
  Weight: 68.03 kg

DRUGS (1)
  1. NEXPLANON [Suspect]
     Active Substance: ETONOGESTREL
     Indication: CONTRACEPTION
     Dosage: 1 DF, 3 YEARS IMPLANT
     Route: 059
     Dates: start: 20171011

REACTIONS (5)
  - Menorrhagia [Unknown]
  - Breast pain [Unknown]
  - Headache [Unknown]
  - Asthenia [Unknown]
  - Discomfort [Unknown]

NARRATIVE: CASE EVENT DATE: 20171018
